FAERS Safety Report 15056474 (Version 2)
Quarter: 2018Q3

REPORT INFORMATION
  Report Type: Report from Study
  Country: AT (occurrence: AT)
  Receive Date: 20180623
  Receipt Date: 20180726
  Transmission Date: 20181010
  Serious: Yes (Hospitalization)
  Sender: FDA-Public Use
  Company Number: AT-ACCORD-068611

PATIENT
  Age: 52 Year
  Sex: Male
  Weight: 79 kg

DRUGS (9)
  1. PANTOLOC [Concomitant]
     Active Substance: PANTOPRAZOLE SODIUM
     Dosage: 40 MG
     Route: 048
  2. BEPANTHEN [Concomitant]
  3. GEMCITABINE/GEMCITABINE HYDROCHLORIDE [Suspect]
     Active Substance: GEMCITABINE\GEMCITABINE HYDROCHLORIDE
     Indication: PANCREATIC CARCINOMA
     Dosage: 1000 MILLIGRAM/SQ. METER
     Route: 041
     Dates: start: 20170724
  4. FORTECORTIN [Concomitant]
     Active Substance: DEXAMETHASONE
     Route: 041
  5. ABRAXANE [Suspect]
     Active Substance: PACLITAXEL
     Indication: PANCREATIC CARCINOMA
     Dosage: 125 MILLIGRAM/SQ. METER
     Route: 041
     Dates: start: 20170724
  6. MEXALEN [Concomitant]
     Active Substance: ACETAMINOPHEN
     Route: 048
  7. NOVALGIN (METAMIZOLE SODIUM) [Concomitant]
     Active Substance: METAMIZOLE SODIUM
     Route: 048
  8. FORLAX [Concomitant]
     Active Substance: POLYETHYLENE GLYCOL 4000
  9. ZOFRAN [Concomitant]
     Active Substance: ONDANSETRON HYDROCHLORIDE
     Dosage: 8 MG
     Route: 048
     Dates: start: 20170912, end: 20170914

REACTIONS (5)
  - Hypoalbuminaemia [Recovered/Resolved]
  - Neutropenia [Recovered/Resolved]
  - White blood cell count increased [None]
  - Neutrophil count increased [None]
  - Deep vein thrombosis [Recovered/Resolved]

NARRATIVE: CASE EVENT DATE: 20170828
